FAERS Safety Report 6769229 (Version 2)
Quarter: 2016Q3

REPORT INFORMATION
  Report Type: Spontaneous
  Country: GB (occurrence: GB)
  Receive Date: 20080924
  Receipt Date: 20160705
  Transmission Date: 20161109
  Serious: Yes (Other)
  Sender: FDA-Public Use
  Company Number: GB-BAUSCH-2008BL003952

PATIENT
  Age: 25 Year
  Sex: Male

DRUGS (9)
  1. LATANOPROST. [Suspect]
     Active Substance: LATANOPROST
     Indication: INTRAOCULAR PRESSURE INCREASED
     Route: 047
     Dates: start: 2000
  2. ACETAZOLAMIDE. [Suspect]
     Active Substance: ACETAZOLAMIDE
     Indication: INTRAOCULAR PRESSURE INCREASED
     Route: 048
  3. TIMOLOL MALEATE. [Suspect]
     Active Substance: TIMOLOL MALEATE
     Indication: INTRAOCULAR PRESSURE INCREASED
     Route: 047
     Dates: start: 2000
  4. DORZOLAMIDE HYDROCHLORIDE. [Suspect]
     Active Substance: DORZOLAMIDE HYDROCHLORIDE
     Indication: INTRAOCULAR PRESSURE INCREASED
     Route: 047
     Dates: start: 2000
  5. ATROPINE. [Suspect]
     Active Substance: ATROPINE
     Indication: ANTERIOR CHAMBER DISORDER
  6. ACETAZOLAMIDE. [Suspect]
     Active Substance: ACETAZOLAMIDE
     Indication: ANTERIOR CHAMBER DISORDER
  7. ATROPINE. [Suspect]
     Active Substance: ATROPINE
     Indication: CYCLOPLEGIA
     Route: 047
  8. PILOCARPINE. [Suspect]
     Active Substance: PILOCARPINE
     Indication: INTRAOCULAR PRESSURE INCREASED
     Route: 047
     Dates: start: 2000
  9. ATROPINE. [Suspect]
     Active Substance: ATROPINE
     Indication: EYE INFLAMMATION

REACTIONS (8)
  - Iridocyclitis [Unknown]
  - Hyphaema [Unknown]
  - Anterior chamber disorder [Recovered/Resolved]
  - Visual acuity tests abnormal [Unknown]
  - Intraocular pressure increased [Recovered/Resolved]
  - Product quality issue [Unknown]
  - Visual field defect [Unknown]
  - Drug ineffective [Unknown]

NARRATIVE: CASE EVENT DATE: 2000
